FAERS Safety Report 5717082-7 (Version None)
Quarter: 2008Q2

REPORT INFORMATION
  Report Type: 
  Country: None (occurrence: None)
  Receive Date: 20080424
  Receipt Date: 20080415
  Transmission Date: 20081010
  Serious: Yes (Other)
  Sender: FDA-Public Use
  Company Number: US-PFIZER INC-2008009370

PATIENT
  Sex: Male
  Weight: 74.8 kg

DRUGS (12)
  1. ERAXIS [Suspect]
     Indication: FUNGAL INFECTION
     Route: 042
     Dates: start: 20080122, end: 20080101
  2. AMPHOTERICIN B [Suspect]
     Indication: HISTOPLASMOSIS
     Route: 042
  3. VANCOMYCIN [Concomitant]
     Route: 042
  4. ZOSYN [Concomitant]
  5. LEVOPHED [Concomitant]
     Route: 042
  6. PROMETHAZINE [Concomitant]
     Route: 042
  7. MORPHINE [Concomitant]
     Route: 042
  8. PROTONIX [Concomitant]
     Route: 042
  9. HEPARIN [Concomitant]
  10. TYLENOL [Concomitant]
     Route: 048
  11. BACTRIM DS [Concomitant]
  12. AZITHROMYCIN [Concomitant]
     Route: 048

REACTIONS (4)
  - BLOOD CREATININE INCREASED [None]
  - DRUG ADMINISTRATION ERROR [None]
  - HISTOPLASMOSIS [None]
  - RENAL FAILURE ACUTE [None]
